FAERS Safety Report 8839966 (Version 2)
Quarter: 2012Q4

REPORT INFORMATION
  Report Type: Report from Study
  Country: AU (occurrence: AU)
  Receive Date: 20121015
  Receipt Date: 20121120
  Transmission Date: 20130627
  Serious: Yes (Hospitalization, Other)
  Sender: FDA-Public Use
  Company Number: AU-VERTEX PHARMACEUTICAL INC.-2012-022238

PATIENT
  Age: 20 Year
  Sex: Male
  Weight: 61.8 kg

DRUGS (13)
  1. VX-809 [Suspect]
     Indication: CYSTIC FIBROSIS
     Dosage: 400 mg, UNK
     Route: 048
     Dates: start: 20120822, end: 20121008
  2. VX-770 [Suspect]
     Indication: CYSTIC FIBROSIS
     Dosage: 250 mg, bid
     Route: 048
     Dates: start: 20120919, end: 20121008
  3. CREON FORTE [Concomitant]
  4. VENTOLIN [Concomitant]
  5. SYMBICORT [Concomitant]
  6. MONTELUKAST [Concomitant]
  7. AZITHROMYCIN [Concomitant]
  8. MYLANTA [Concomitant]
  9. RHINOCORT [Concomitant]
  10. CALTRATE [Concomitant]
  11. OMEPRAZOLE [Concomitant]
  12. VITAMINS [Concomitant]
  13. FORTISIP [Concomitant]

REACTIONS (3)
  - Respiration abnormal [Recovered/Resolved]
  - Dyspnoea [Recovered/Resolved]
  - Infective pulmonary exacerbation of cystic fibrosis [Recovered/Resolved]
